FAERS Safety Report 18744649 (Version 2)
Quarter: 2021Q3

REPORT INFORMATION
  Report Type: Spontaneous
  Country: US (occurrence: US)
  Receive Date: 20210115
  Receipt Date: 20210730
  Transmission Date: 20211014
  Serious: Yes (Other)
  Sender: FDA-Public Use
  Company Number: US-JNJFOC-20210117692

PATIENT
  Age: 74 Year
  Sex: Female

DRUGS (1)
  1. ELMIRON [Suspect]
     Active Substance: PENTOSAN POLYSULFATE SODIUM
     Indication: CYSTITIS INTERSTITIAL
     Route: 048
     Dates: start: 2000

REACTIONS (5)
  - Retinal injury [Unknown]
  - Dry age-related macular degeneration [Unknown]
  - Vitreous detachment [Unknown]
  - Maculopathy [Unknown]
  - Ophthalmic migraine [Unknown]

NARRATIVE: CASE EVENT DATE: 20190221
